FAERS Safety Report 7504317-3 (Version None)
Quarter: 2011Q2

REPORT INFORMATION
  Report Type: 
  Country: None (occurrence: None)
  Receive Date: 20110525
  Receipt Date: 20110510
  Transmission Date: 20111010
  Serious: Yes (Hospitalization)
  Sender: FDA-Public Use
  Company Number: US-JNJFOC-20110505151

PATIENT
  Age: 80 Year
  Sex: Female
  Weight: 73.94 kg

DRUGS (7)
  1. CENTRUM MULTIVITAMINS [Concomitant]
     Indication: VITAMIN SUPPLEMENTATION
     Route: 065
  2. NEOSPORIN [Suspect]
     Indication: PAIN IN EXTREMITY
     Route: 061
     Dates: start: 20110509, end: 20110509
  3. LIDOCAINE [Suspect]
     Indication: FOOT OPERATION
     Route: 065
     Dates: start: 20110509
  4. FISH OIL [Concomitant]
     Indication: MEDICAL DIET
     Route: 065
  5. PRILOSEC [Concomitant]
     Indication: GASTROOESOPHAGEAL REFLUX DISEASE
     Route: 065
  6. ASPIRIN [Concomitant]
     Indication: ANTICOAGULANT THERAPY
     Route: 065
  7. CRANBERRY PILL [Concomitant]
     Indication: PRODUCT USED FOR UNKNOWN INDICATION
     Route: 065

REACTIONS (3)
  - NAUSEA [None]
  - DIZZINESS [None]
  - OFF LABEL USE [None]
